FAERS Safety Report 8150925-9 (Version None)
Quarter: 2012Q1

REPORT INFORMATION
  Report Type: 
  Country: None (occurrence: None)
  Receive Date: 20120220
  Receipt Date: 20120210
  Transmission Date: 20120608
  Serious: Yes (Hospitalization, Other)
  Sender: FDA-Public Use
  Company Number: US-ABBOTT-12P-163-0904176-00

PATIENT
  Age: 64 Year
  Sex: Male

DRUGS (1)
  1. HUMIRA [Suspect]
     Indication: RHEUMATOID ARTHRITIS
     Dates: end: 20120118

REACTIONS (6)
  - SPINAL FUSION SURGERY [None]
  - WHITE BLOOD CELL COUNT INCREASED [None]
  - WOUND INFECTION STAPHYLOCOCCAL [None]
  - STAPHYLOCOCCAL BACTERAEMIA [None]
  - HERNIA REPAIR [None]
  - HAEMOGLOBIN ABNORMAL [None]
